FAERS Safety Report 9513262 (Version 19)
Quarter: 2014Q2

REPORT INFORMATION
  Report Type: Spontaneous
  Country: IL (occurrence: IL)
  Receive Date: 20130910
  Receipt Date: 20140612
  Transmission Date: 20141212
  Serious: Yes (Hospitalization, Other)
  Sender: FDA-Public Use
  Company Number: IL-009507513-1308ISR005396

PATIENT
  Age: 59 Year
  Sex: Male

DRUGS (5)
  1. VICTRELIS [Suspect]
     Indication: HEPATITIS C
     Dosage: UNK
     Route: 048
     Dates: start: 20130806, end: 20140608
  2. PEGASYS [Suspect]
     Indication: HEPATITIS C
     Dosage: 180 MICROGRAM, UNK
     Dates: start: 20130709, end: 20140608
  3. COPEGUS [Suspect]
     Indication: HEPATITIS C
     Dosage: 1000 MG, UNK
     Dates: start: 20130709, end: 201308
  4. COPEGUS [Suspect]
     Dosage: 600 MG, UNK
     Dates: start: 20130828, end: 20140608
  5. EPOETIN [Concomitant]
     Dosage: UNK

REACTIONS (37)
  - Transfusion [Unknown]
  - Transfusion [Recovering/Resolving]
  - Hypotension [Recovering/Resolving]
  - Haemoglobin decreased [Recovering/Resolving]
  - Haemoglobin decreased [Not Recovered/Not Resolved]
  - Skin irritation [Not Recovered/Not Resolved]
  - Tremor [Unknown]
  - Activities of daily living impaired [Unknown]
  - Negative thoughts [Unknown]
  - Self-injurious ideation [Unknown]
  - Abdominal pain [Recovering/Resolving]
  - Abdominal pain [Not Recovered/Not Resolved]
  - Constipation [Unknown]
  - Mood altered [Unknown]
  - Malaise [Unknown]
  - Memory impairment [Unknown]
  - Hypotension [Not Recovered/Not Resolved]
  - Depression [Unknown]
  - Pyrexia [Unknown]
  - Pyrexia [Recovering/Resolving]
  - Weight decreased [Unknown]
  - Pruritus generalised [Unknown]
  - Dyspnoea [Unknown]
  - Depressed mood [Unknown]
  - Fatigue [Unknown]
  - Nausea [Not Recovered/Not Resolved]
  - Vomiting [Unknown]
  - Rash [Unknown]
  - Insomnia [Not Recovered/Not Resolved]
  - Decreased appetite [Unknown]
  - Asthenia [Unknown]
  - Dizziness [Unknown]
  - Dysgeusia [Unknown]
  - Asthenia [Not Recovered/Not Resolved]
  - Dizziness [Not Recovered/Not Resolved]
  - Peripheral swelling [Not Recovered/Not Resolved]
  - Oedema peripheral [Not Recovered/Not Resolved]
